FAERS Safety Report 10216702 (Version 1)
Quarter: 2014Q2

REPORT INFORMATION
  Report Type: Spontaneous
  Country: US (occurrence: US)
  Receive Date: 20140604
  Receipt Date: 20140604
  Transmission Date: 20141212
  Serious: Yes (Other)
  Sender: FDA-Public Use
  Company Number: US-JNJFOC-20140600573

PATIENT
  Sex: Male

DRUGS (1)
  1. OLYSIO [Suspect]
     Indication: HEPATITIS C
     Route: 065

REACTIONS (2)
  - Back pain [Not Recovered/Not Resolved]
  - Memory impairment [Not Recovered/Not Resolved]
